FAERS Safety Report 15808168 (Version 1)
Quarter: 2019Q1

REPORT INFORMATION
  Report Type: Spontaneous
  Country: CN (occurrence: CN)
  Receive Date: 20190110
  Receipt Date: 20190110
  Transmission Date: 20190417
  Serious: Yes (Hospitalization)
  Sender: FDA-Public Use
  Company Number: CN-NOVOPROD-640735

PATIENT
  Age: 76 Year
  Sex: Male

DRUGS (1)
  1. NOVOLIN N [Suspect]
     Active Substance: INSULIN HUMAN
     Indication: TYPE 2 DIABETES MELLITUS
     Dosage: 56 U, QD (34 U IN THE MORNING AND 22 U IN THE EVENING)
     Route: 058
     Dates: start: 20180815, end: 20181024

REACTIONS (3)
  - Hypertension [Unknown]
  - Blood glucose fluctuation [Unknown]
  - Hypoglycaemic coma [Recovered/Resolved]

NARRATIVE: CASE EVENT DATE: 20181024
